FAERS Safety Report 5747587-4 (Version None)
Quarter: 2008Q2

REPORT INFORMATION
  Report Type: 
  Country: None (occurrence: None)
  Receive Date: 20080523
  Receipt Date: 20080516
  Transmission Date: 20081010
  Serious: Yes (Hospitalization)
  Sender: FDA-Public Use
  Company Number: PL-ASTRAZENECA-2008SE01869

PATIENT
  Age: 16622 Day
  Sex: Female
  Weight: 59 kg

DRUGS (7)
  1. ZD6474 [Suspect]
     Indication: MEDULLARY THYROID CANCER
     Route: 048
     Dates: start: 20070214
  2. ELTROXIN [Concomitant]
     Indication: HYPOTHYROIDISM
     Route: 048
     Dates: end: 20070416
  3. ALFADIOL [Concomitant]
     Indication: HYPOPARATHYROIDISM
     Route: 048
  4. CALPEROS [Concomitant]
     Indication: HYPOPARATHYROIDISM
     Route: 048
  5. KALIPOZ [Concomitant]
     Indication: HYPOKALAEMIA
     Route: 048
     Dates: start: 20070111, end: 20070505
  6. ZOMETA [Concomitant]
     Indication: METASTASES TO BONE
     Route: 042
  7. KALIMET [Concomitant]
     Indication: PROPHYLAXIS
     Route: 003
     Dates: end: 20070929

REACTIONS (2)
  - FATIGUE [None]
  - GASTRITIS [None]
